FAERS Safety Report 5001567-5 (Version None)
Quarter: 2006Q2

REPORT INFORMATION
  Report Type: 
  Country: None (occurrence: None)
  Receive Date: 20060510
  Receipt Date: 20060503
  Transmission Date: 20061013
  Serious: Yes (Life-Threatening, Other)
  Sender: FDA-Public Use
  Company Number: 2006-03-1929

PATIENT
  Age: 54 Year
  Sex: Female
  Weight: 75.2971 kg

DRUGS (4)
  1. NASONEX [Suspect]
     Indication: RHINITIS ALLERGIC
     Dosage: 1 SPRAY/NOSTER NASAL SPRAY
     Route: 045
     Dates: start: 20060322, end: 20060322
  2. NASAREL (FLUNISOLIDE) [Concomitant]
  3. ZOCOR [Concomitant]
  4. AMBIEN [Concomitant]

REACTIONS (4)
  - ANAPHYLACTIC SHOCK [None]
  - BLOOD PRESSURE INCREASED [None]
  - DIZZINESS [None]
  - THERMAL BURN [None]
